FAERS Safety Report 6642220-1 (Version None)
Quarter: 2010Q1

REPORT INFORMATION
  Report Type: 
  Country: None (occurrence: None)
  Receive Date: 20100319
  Receipt Date: 20100312
  Transmission Date: 20100710
  Serious: Yes (Death, Life-Threatening, Hospitalization, Other)
  Sender: FDA-Public Use
  Company Number: BE-ELI_LILLY_AND_COMPANY-BE201002007209

PATIENT
  Sex: Male
  Weight: 71 kg

DRUGS (21)
  1. PEMETREXED [Suspect]
     Indication: NON-SMALL CELL LUNG CANCER
     Dosage: 905 MG, UNK
     Route: 042
     Dates: start: 20091230, end: 20100120
  2. OTHER PHARMA COMPANY INV DRUG [Suspect]
     Indication: NON-SMALL CELL LUNG CANCER
     Dosage: 800 MG, UNK
     Route: 042
     Dates: start: 20091230, end: 20100106
  3. CISPLATIN [Suspect]
     Indication: NON-SMALL CELL LUNG CANCER
     Dosage: 136 MG, OTHER
     Route: 042
     Dates: start: 20091230, end: 20100120
  4. COMBIVENT [Concomitant]
     Indication: DRUG USE FOR UNKNOWN INDICATION
     Dosage: 3 D/F, DAILY (1/D)
     Route: 055
  5. SENOKOT [Concomitant]
     Indication: CONSTIPATION
     Dosage: 2 D/F, DAILY (1/D)
     Route: 065
     Dates: start: 20091228
  6. MOVICOL [Concomitant]
     Indication: CONSTIPATION
     Dosage: 2 D/F, DAILY (1/D)
     Route: 065
     Dates: start: 20091228
  7. SOFTENE [Concomitant]
     Indication: CONSTIPATION
     Dosage: 2 D/F, AS NEEDED
     Route: 065
     Dates: start: 20091228
  8. PARACETAMOL [Concomitant]
     Indication: PAIN
     Dosage: 1 G, 4/D
     Dates: start: 20091228
  9. ZOLPIDEM [Concomitant]
     Indication: INSOMNIA
     Dosage: 10 MG, AS NEEDED
     Route: 048
     Dates: start: 20091228
  10. ALPRAZOLAM [Concomitant]
     Indication: INSOMNIA
     Dosage: 0.5 MG, 4/D
     Dates: start: 20091228
  11. FOLAVIT [Concomitant]
     Indication: PREMEDICATION
     Dosage: 0.4 MG, DAILY (1/D)
     Dates: start: 20091223
  12. MEDROL [Concomitant]
     Indication: PROPHYLAXIS
     Dosage: 32 MG, DAILY (1/D)
     Dates: start: 20091228
  13. IBUPROFEN [Concomitant]
     Indication: PAIN
     Dosage: 3 D/F, DAILY (1/D)
     Dates: start: 20091228
  14. OMEPRAZOLE [Concomitant]
     Indication: OESOPHAGITIS
     Dates: start: 20091214
  15. MS DIRECT [Concomitant]
     Indication: PAIN
     Dates: start: 20091228
  16. CLEXAN [Concomitant]
     Indication: EMBOLISM
     Dates: start: 20091213
  17. DURAGESIC-100 [Concomitant]
     Indication: PAIN
     Dates: start: 20091228
  18. VITAMIN B-12 [Concomitant]
     Indication: PREMEDICATION
     Dates: start: 20091223
  19. PULMICORT [Concomitant]
     Indication: CHRONIC OBSTRUCTIVE PULMONARY DISEASE
     Dates: start: 20091214, end: 20091228
  20. VENTOLIN                                /SCH/ [Concomitant]
     Indication: CHRONIC OBSTRUCTIVE PULMONARY DISEASE
     Dates: start: 20091214, end: 20091228
  21. LYSOMUCIL [Concomitant]
     Indication: BRONCHITIS
     Dates: start: 20091214, end: 20091217

REACTIONS (3)
  - DEATH [None]
  - INFLAMMATION [None]
  - PERIPHERAL ISCHAEMIA [None]
